FAERS Safety Report 7372120-3 (Version None)
Quarter: 2011Q1

REPORT INFORMATION
  Report Type: 
  Country: None (occurrence: None)
  Receive Date: 20110324
  Receipt Date: 20110317
  Transmission Date: 20110831
  Serious: Yes (Death)
  Sender: FDA-Public Use
  Company Number: US-ROCHE-767010

PATIENT
  Age: 70 Year
  Sex: Female

DRUGS (17)
  1. CLONAZEPAM [Suspect]
     Dosage: ONGOING STATUS UNKNOWN AT THE TIME OF DEATH, ROUTE: INGESTION + INHALATION
     Route: 050
  2. DULOXETINE [Suspect]
     Dosage: ROUTE: INGESTION
     Route: 048
  3. TORSEMIDE [Suspect]
     Route: 048
  4. HYDROMORPHONE HCL [Suspect]
     Route: 048
  5. CHLORDIAZEPOXIDE [Suspect]
     Dosage: ROUTE: INGESTION
     Route: 048
  6. OXYCODONE [Suspect]
     Dosage: ROUTE: INGESTION
     Route: 048
  7. CYCLOBENZAPRINE [Suspect]
     Dosage: ROUTE: INGESTION
     Route: 048
  8. FLUOXETINE [Suspect]
     Dosage: ROUTE: INGESTION
     Route: 048
  9. CALCIUM [Suspect]
     Route: 048
  10. DESIPRAMIDE HCL [Suspect]
     Dosage: ROUTE: INGESTION
     Route: 048
  11. PREGABALIN [Suspect]
     Dosage: ROUTE: INGESTION
     Route: 048
  12. LOVASTATIN [Suspect]
     Dosage: ROUTE: INGESTION
     Route: 048
  13. LISINOPRIL [Suspect]
     Dosage: ROUTE: INGESTION
     Route: 048
  14. FOLIC ACID [Suspect]
     Dosage: ROUTE: INGESTION
     Route: 048
  15. PARACETAMOL [Suspect]
     Route: 065
  16. METHADONE [Suspect]
     Dosage: ROUTE: INGESTION
     Route: 048
  17. MELOXICAM [Suspect]
     Route: 048

REACTIONS (1)
  - TOXICITY TO VARIOUS AGENTS [None]
